FAERS Safety Report 4494992-2 (Version None)
Quarter: 2004Q4

REPORT INFORMATION
  Report Type: 
  Country: None (occurrence: None)
  Receive Date: 20041108
  Receipt Date: 20041028
  Transmission Date: 20050328
  Serious: Yes (Hospitalization, Other)
  Sender: FDA-Public Use
  Company Number: US-JNJFOC-20041000893

PATIENT
  Sex: Female
  Weight: 67.13 kg

DRUGS (21)
  1. INFLIXIMAB [Suspect]
     Indication: RHEUMATOID ARTHRITIS
     Route: 042
  2. ALLEGRA [Concomitant]
     Indication: PREMEDICATION
  3. FOSAMAX [Concomitant]
  4. PLAQUENIL [Concomitant]
  5. ALEVE [Concomitant]
     Dosage: 440-660 MG DAILY
  6. FOLIC ACID [Concomitant]
     Dosage: 4-6 MG DAILY
  7. EVISTA [Concomitant]
  8. METHOTREXATE [Concomitant]
     Dosage: 10-12.5 MG WEEKLY
  9. CALCIUM [Concomitant]
  10. VITAMIN D [Concomitant]
  11. GLUCOSAMINE [Concomitant]
  12. CHONDROITIN [Concomitant]
  13. MULTI-VITAMIN [Concomitant]
  14. MULTI-VITAMIN [Concomitant]
  15. MULTI-VITAMIN [Concomitant]
  16. MULTI-VITAMIN [Concomitant]
  17. MULTI-VITAMIN [Concomitant]
  18. MULTI-VITAMIN [Concomitant]
  19. MULTI-VITAMIN [Concomitant]
  20. MULTI-VITAMIN [Concomitant]
  21. TYLENOL [Concomitant]
     Indication: PREMEDICATION

REACTIONS (1)
  - BREAST CANCER STAGE III [None]
